FAERS Safety Report 14563046 (Version 2)
Quarter: 2018Q3

REPORT INFORMATION
  Report Type: Spontaneous
  Country: US (occurrence: US)
  Receive Date: 20180222
  Receipt Date: 20180815
  Transmission Date: 20181010
  Serious: Yes (Hospitalization, Other)
  Sender: FDA-Public Use
  Company Number: US-ASTRAZENECA-2018SE20468

PATIENT
  Age: 23003 Day
  Sex: Male
  Weight: 106.1 kg

DRUGS (73)
  1. NEXIUM [Suspect]
     Active Substance: ESOMEPRAZOLE MAGNESIUM
     Indication: DUODENOGASTRIC REFLUX
     Dosage: 20.0MG UNKNOWN
     Route: 048
     Dates: start: 2013, end: 2014
  2. POTASSIUM CHLORIDE. [Concomitant]
     Active Substance: POTASSIUM CHLORIDE
     Dosage: 10.0MEQ UNKNOWN
     Route: 065
     Dates: start: 20130329
  3. PREDNISONE. [Concomitant]
     Active Substance: PREDNISONE
     Dosage: 10.0MG UNKNOWN
     Route: 065
     Dates: start: 20130517
  4. SINGULAIR [Concomitant]
     Active Substance: MONTELUKAST SODIUM
     Dosage: 10.0MG UNKNOWN
     Route: 065
     Dates: start: 20120107
  5. AMOXYCILLIN [Concomitant]
     Active Substance: AMOXICILLIN
     Dosage: 500.0MG UNKNOWN
     Route: 065
     Dates: start: 20120314
  6. CALCITRIOL. [Concomitant]
     Active Substance: CALCITRIOL
     Dosage: 0.5MCG
     Route: 048
     Dates: start: 20141216, end: 20151217
  7. METOPROLOL TARTRATE. [Concomitant]
     Active Substance: METOPROLOL TARTRATE
     Indication: CARDIAC DISORDER
     Route: 048
     Dates: start: 20140905, end: 20150905
  8. ISOSORBIDE DINITRATE. [Concomitant]
     Active Substance: ISOSORBIDE DINITRATE
     Indication: CARDIAC DISORDER
     Route: 048
     Dates: start: 20140523, end: 20140622
  9. NOREPINEPHRINE. [Concomitant]
     Active Substance: NOREPINEPHRINE
     Dosage: 4MG/250ML D5W 250 ML
     Route: 042
     Dates: start: 20140603, end: 20140603
  10. VANCOMYCIN [Concomitant]
     Active Substance: VANCOMYCIN
     Dosage: VANCOMYCIN 1000 MG NORMAL SALINE 250 ML
     Route: 042
     Dates: start: 20140603, end: 20140603
  11. NEXIUM [Suspect]
     Active Substance: ESOMEPRAZOLE MAGNESIUM
     Indication: DUODENOGASTRIC REFLUX
     Route: 048
     Dates: start: 2001, end: 2016
  12. TRAMADOL HYDROCHLORIDE. [Concomitant]
     Active Substance: TRAMADOL HYDROCHLORIDE
     Dosage: 50.0MG UNKNOWN
     Route: 065
     Dates: start: 20120613
  13. OMEPRAZOLE. [Concomitant]
     Active Substance: OMEPRAZOLE
     Indication: GASTROOESOPHAGEAL REFLUX DISEASE
     Route: 048
     Dates: start: 20140604, end: 20150226
  14. SENNOSIDES. [Concomitant]
     Active Substance: SENNOSIDES
     Route: 048
     Dates: start: 20140607, end: 20140609
  15. NEXIUM [Suspect]
     Active Substance: ESOMEPRAZOLE MAGNESIUM
     Indication: GASTROOESOPHAGEAL REFLUX DISEASE
     Dosage: 40.0MG UNKNOWN
     Route: 048
     Dates: start: 20131224, end: 20161229
  16. LISINOPRIL. [Concomitant]
     Active Substance: LISINOPRIL
     Indication: BLOOD PRESSURE MEASUREMENT
     Dosage: 20.0MG UNKNOWN
     Route: 048
     Dates: start: 20141205, end: 20151206
  17. AZITHROMYCIN ANHYDROUS. [Concomitant]
     Active Substance: AZITHROMYCIN ANHYDROUS
     Dosage: 250.0MG UNKNOWN
     Route: 065
     Dates: start: 20130517
  18. LANTUS [Concomitant]
     Active Substance: INSULIN GLARGINE
     Indication: BLOOD GLUCOSE ABNORMAL
     Dosage: 100U/ML
     Route: 058
     Dates: start: 20100201
  19. VERAPAMIL HYDROCHLORIDE. [Concomitant]
     Active Substance: VERAPAMIL HYDROCHLORIDE
     Indication: BLOOD PRESSURE MEASUREMENT
     Route: 048
     Dates: start: 20130823, end: 20140824
  20. SIMVASTATIN. [Concomitant]
     Active Substance: SIMVASTATIN
     Indication: BLOOD CHOLESTEROL
     Dosage: 40 MG TAKE ONE?HALF TABLET BY MOUTH AT BEDTIME
     Route: 048
     Dates: start: 20130715, end: 20140716
  21. ZOLPIDEM [Concomitant]
     Active Substance: ZOLPIDEM\ZOLPIDEM TARTRATE
     Indication: SLEEP DISORDER
     Route: 048
     Dates: start: 20140609, end: 20140709
  22. RANITIDINE. [Concomitant]
     Active Substance: RANITIDINE
     Dosage: 150.0MG UNKNOWN
     Route: 065
     Dates: start: 20100727
  23. CYMBALTA [Concomitant]
     Active Substance: DULOXETINE HYDROCHLORIDE
     Indication: PAIN
     Dosage: 60.0MG UNKNOWN
     Route: 065
     Dates: start: 20121221
  24. SYMBICORT [Concomitant]
     Active Substance: BUDESONIDE\FORMOTEROL FUMARATE DIHYDRATE
     Dosage: 160?4.5
     Route: 065
     Dates: start: 20111017
  25. LEVOFLOXACIN. [Concomitant]
     Active Substance: LEVOFLOXACIN
     Dosage: 250.0MG UNKNOWN
     Route: 065
     Dates: start: 20110803
  26. NOVOLOG [Concomitant]
     Active Substance: INSULIN ASPART
     Dosage: 100U\ML
     Route: 065
     Dates: start: 20111205
  27. HYDRALAZINE HCL [Concomitant]
     Active Substance: HYDRALAZINE HYDROCHLORIDE
     Indication: CARDIAC DISORDER
     Route: 048
     Dates: start: 20140506, end: 20150507
  28. ROSUVASTATIN CALCIUM. [Concomitant]
     Active Substance: ROSUVASTATIN CALCIUM
     Indication: BLOOD CHOLESTEROL
     Dosage: TAKE ONE?HALF TABLET BY MOUTH EVERY DAY
     Route: 048
     Dates: start: 20110805, end: 20120805
  29. FELODIPINE. [Concomitant]
     Active Substance: FELODIPINE
     Indication: BLOOD PRESSURE MEASUREMENT
     Route: 048
     Dates: start: 20061010, end: 20071011
  30. NEXIUM [Suspect]
     Active Substance: ESOMEPRAZOLE MAGNESIUM
     Indication: DUODENOGASTRIC REFLUX
     Dosage: 40.0MG UNKNOWN
     Route: 048
     Dates: start: 20131224, end: 20161229
  31. AMOX/K CLAV [Concomitant]
     Active Substance: AMOXICILLIN\CLAVULANATE POTASSIUM
     Dosage: 500?125
     Route: 065
     Dates: start: 20130116
  32. FUROSEMIDE. [Concomitant]
     Active Substance: FUROSEMIDE
     Indication: BLOOD PRESSURE MEASUREMENT
     Dosage: 40.0MG UNKNOWN
     Route: 065
     Dates: start: 20130329
  33. ALBUTEROL. [Concomitant]
     Active Substance: ALBUTEROL
     Route: 065
     Dates: start: 20120222
  34. LOSARTAN POTASSIUM. [Concomitant]
     Active Substance: LOSARTAN POTASSIUM
     Dosage: 50.0MG UNKNOWN
     Route: 065
     Dates: start: 20120223
  35. BENZONATATE. [Concomitant]
     Active Substance: BENZONATATE
     Dosage: 200.0MG UNKNOWN
     Route: 065
     Dates: start: 20100322
  36. ATORVASTATIN [Concomitant]
     Active Substance: ATORVASTATIN
     Indication: BLOOD CHOLESTEROL
     Dosage: TAB 80MG TAKE ONE?HALF TABLET BY MOUTH AT BEDTIME
     Route: 048
     Dates: start: 20140821, end: 20150822
  37. ASPIRIN. [Concomitant]
     Active Substance: ASPIRIN
     Indication: CARDIAC DISORDER
     Route: 048
     Dates: start: 2002, end: 20150822
  38. ACETAMINOPHEN. [Concomitant]
     Active Substance: ACETAMINOPHEN
     Indication: PAIN
     Route: 048
     Dates: start: 20140630, end: 20150701
  39. HEPARIN [Concomitant]
     Active Substance: HEPARIN SODIUM
     Dosage: 5000UNIT/0.5ML
     Route: 058
     Dates: start: 20140607, end: 20140609
  40. INSULIN HUMAN [Concomitant]
     Active Substance: INSULIN HUMAN
     Dosage: 100UNITS/ML
     Route: 058
     Dates: start: 20140607, end: 20140609
  41. HYDROMORPHONE [Concomitant]
     Active Substance: HYDROMORPHONE
     Dosage: 25MG IN 25ML NS
     Route: 042
     Dates: start: 20140603, end: 20140605
  42. METHYLPREDNISOLONE. [Concomitant]
     Active Substance: METHYLPREDNISOLONE
     Dosage: 4.0MG UNKNOWN
     Route: 065
     Dates: start: 20130225
  43. LISINOPRIL. [Concomitant]
     Active Substance: LISINOPRIL
     Indication: BLOOD PRESSURE MEASUREMENT
     Dosage: 40.0MG UNKNOWN
     Route: 065
     Dates: start: 20130329
  44. IBUPROFEN. [Concomitant]
     Active Substance: IBUPROFEN
     Dosage: 800.0MG UNKNOWN
     Route: 065
     Dates: start: 20130116
  45. NIFEDIAC CC [Concomitant]
     Active Substance: NIFEDIPINE
     Dosage: 60.0MG UNKNOWN
     Route: 065
     Dates: start: 20120905
  46. LEVAQUIN [Concomitant]
     Active Substance: LEVOFLOXACIN
     Dosage: 750.0MG UNKNOWN
     Route: 065
     Dates: start: 20100322
  47. PROPO?N/APAP [Concomitant]
     Dosage: 100?650
     Route: 065
     Dates: start: 20100727
  48. CALCIUM ACETATE. [Concomitant]
     Active Substance: CALCIUM ACETATE
     Route: 048
     Dates: start: 20141205, end: 20151206
  49. METOPROLOL TARTRATE. [Concomitant]
     Active Substance: METOPROLOL TARTRATE
     Indication: BLOOD PRESSURE MEASUREMENT
     Route: 048
     Dates: start: 20140905, end: 20150905
  50. AMLODIPINE BESYLATE. [Concomitant]
     Active Substance: AMLODIPINE BESYLATE
     Indication: BLOOD PRESSURE MEASUREMENT
     Route: 048
     Dates: start: 20140820, end: 20150821
  51. AMLODIPINE BESYLATE. [Concomitant]
     Active Substance: AMLODIPINE BESYLATE
     Indication: CARDIAC DISORDER
     Route: 048
     Dates: start: 20140820, end: 20150821
  52. TIZANIDINE. [Concomitant]
     Active Substance: TIZANIDINE
     Indication: MUSCLE SPASMS
     Route: 048
     Dates: start: 20140609, end: 20150610
  53. CARVEDILOL. [Concomitant]
     Active Substance: CARVEDILOL
     Indication: CARDIAC DISORDER
     Route: 048
     Dates: start: 20140523, end: 20150524
  54. VERAPAMIL HYDROCHLORIDE. [Concomitant]
     Active Substance: VERAPAMIL HYDROCHLORIDE
     Indication: CARDIAC DISORDER
     Route: 048
     Dates: start: 20130823, end: 20140824
  55. ONDANSETRON [Concomitant]
     Active Substance: ONDANSETRON
     Dosage: 4MG/2ML Q6H
     Route: 042
     Dates: start: 20140607, end: 20140609
  56. NEXIUM [Suspect]
     Active Substance: ESOMEPRAZOLE MAGNESIUM
     Indication: GASTROOESOPHAGEAL REFLUX DISEASE
     Dosage: 20.0MG UNKNOWN
     Route: 048
     Dates: start: 2013, end: 2014
  57. HYDROCHLOROTHIAZIDE. [Concomitant]
     Active Substance: HYDROCHLOROTHIAZIDE
     Indication: BLOOD PRESSURE MEASUREMENT
     Route: 065
     Dates: start: 20120224
  58. LANTUS [Concomitant]
     Active Substance: INSULIN GLARGINE
     Indication: DIABETES MELLITUS
     Dosage: 100U/ML
     Route: 058
     Dates: start: 20100201
  59. LEVOFLOXACIN. [Concomitant]
     Active Substance: LEVOFLOXACIN
     Dosage: 750.0MG UNKNOWN
     Route: 065
     Dates: start: 20111217
  60. CETIRIZINE HYDROCHLORIDE. [Concomitant]
     Active Substance: CETIRIZINE HYDROCHLORIDE
     Indication: MULTIPLE ALLERGIES
     Dosage: TAKE ONE?HALF TABLET BY MOUTH EVERY DAY FOR ALLERGIES
     Route: 048
     Dates: start: 20141203, end: 20151204
  61. ACETAMINOPHEN. [Concomitant]
     Active Substance: ACETAMINOPHEN
     Indication: PYREXIA
     Route: 048
     Dates: start: 20140630, end: 20150701
  62. QUETIAPINE. [Concomitant]
     Active Substance: QUETIAPINE
     Route: 048
     Dates: start: 20140605, end: 20140606
  63. GABAPENTIN. [Concomitant]
     Active Substance: GABAPENTIN
     Route: 048
     Dates: start: 20120713, end: 20130714
  64. TRAZODONE [Concomitant]
     Active Substance: TRAZODONE HYDROCHLORIDE
     Indication: INSOMNIA
     Route: 048
     Dates: start: 20111003, end: 20121003
  65. VALSARTAN. [Concomitant]
     Active Substance: VALSARTAN
     Indication: BLOOD PRESSURE MEASUREMENT
     Route: 048
     Dates: start: 20080626, end: 20090627
  66. PANTOPRAZOLE [Concomitant]
     Active Substance: PANTOPRAZOLE
     Dosage: 40 MG
     Route: 048
     Dates: start: 20160322, end: 20160325
  67. NEXIUM [Suspect]
     Active Substance: ESOMEPRAZOLE MAGNESIUM
     Indication: GASTROOESOPHAGEAL REFLUX DISEASE
     Route: 048
     Dates: start: 2001, end: 2016
  68. FUROSEMIDE. [Concomitant]
     Active Substance: FUROSEMIDE
     Indication: BLOOD PRESSURE MEASUREMENT
     Dosage: 20.0MG UNKNOWN
     Route: 065
     Dates: start: 20121127
  69. CEFUROX [Concomitant]
     Active Substance: CEFUROXIME AXETIL
     Dosage: 250.0MG UNKNOWN
     Route: 065
     Dates: start: 20131009
  70. HYDROC/APAP [Concomitant]
     Dosage: 5?325MG
     Route: 065
     Dates: start: 20100322
  71. ERGOCALCIFEROL. [Concomitant]
     Active Substance: ERGOCALCIFEROL
     Indication: VITAMIN D DEFICIENCY
     Dosage: 50,000UNIT TAKE ONE CAPSULE BY MOUTH WEEKLY
     Route: 048
     Dates: start: 20141023, end: 20151024
  72. ASPIRIN. [Concomitant]
     Active Substance: ASPIRIN
     Indication: ANTICOAGULANT THERAPY
     Route: 048
     Dates: start: 2002, end: 20150822
  73. VALACICLOVIR HYDROCHLORIDE [Concomitant]
     Active Substance: VALACYCLOVIR HYDROCHLORIDE
     Indication: HERPES ZOSTER
     Route: 048
     Dates: start: 20071227, end: 20081227

REACTIONS (3)
  - End stage renal disease [Unknown]
  - Chronic kidney disease [Not Recovered/Not Resolved]
  - Renal failure [Unknown]

NARRATIVE: CASE EVENT DATE: 20130517
